FAERS Safety Report 9399430 (Version 1)
Quarter: 2013Q3

REPORT INFORMATION
  Report Type: Spontaneous
  Country: US (occurrence: None)
  Receive Date: 20130710
  Receipt Date: 20130710
  Transmission Date: 20140515
  Serious: Yes (Hospitalization)
  Sender: FDA-Public Use
  Company Number: ACO_37147_2013

PATIENT
  Age: 61 Year
  Sex: Female
  Weight: 66.7 kg

DRUGS (7)
  1. AMPYRA [Suspect]
     Indication: GAIT DISTURBANCE
     Route: 048
     Dates: start: 201003
  2. AMPYRA [Suspect]
     Indication: MULTIPLE SCLEROSIS
     Route: 048
     Dates: start: 201003
  3. DIAZEPAM (DIAZEPAM) [Concomitant]
  4. ENTERIC ASPIRIN (ACETYLSALICYCLIC ACID) [Concomitant]
  5. TYLENOL (PARACETAMOL) [Concomitant]
  6. LEXAPRO (ESCITALOPRAM OXALATE) [Concomitant]
  7. BACLOFEN (BACLOFEN) [Concomitant]

REACTIONS (3)
  - Spinal column injury [None]
  - Fall [None]
  - Fatigue [None]
